FAERS Safety Report 7128593-4 (Version None)
Quarter: 2010Q4

REPORT INFORMATION
  Report Type: 
  Country: None (occurrence: None)
  Receive Date: 20101130
  Receipt Date: 20101119
  Transmission Date: 20110411
  Serious: Yes (Hospitalization)
  Sender: FDA-Public Use
  Company Number: US-ASTRAZENECA-2010SE55424

PATIENT
  Age: 47 Year
  Sex: Female

DRUGS (1)
  1. SYMBICORT [Suspect]
     Dosage: 160 4.5 TWO PUFFS BID
     Route: 055
     Dates: start: 20090501

REACTIONS (2)
  - ACUTE RESPIRATORY FAILURE [None]
  - PNEUMONIA [None]
